FAERS Safety Report 19198442 (Version 4)
Quarter: 2021Q2

REPORT INFORMATION
  Report Type: Report from Study
  Country: FR (occurrence: FR)
  Receive Date: 20210430
  Receipt Date: 20210623
  Transmission Date: 20210717
  Serious: Yes (Death, Life-Threatening, Hospitalization)
  Sender: FDA-Public Use
  Company Number: FR-ROCHE-2819518

PATIENT
  Age: 43 Year
  Sex: Female
  Weight: 50 kg

DRUGS (25)
  1. DUROGESIC [Concomitant]
     Active Substance: FENTANYL
     Indication: SCIATICA
     Dates: start: 20210204, end: 20210329
  2. METHYLPREDNISOLONE. [Concomitant]
     Active Substance: METHYLPREDNISOLONE
     Route: 042
     Dates: start: 20210421, end: 20210429
  3. CALCIDOSE (FRANCE) [Concomitant]
     Active Substance: CALCIUM CARBONATE
     Indication: HYPOCALCAEMIA
     Dates: start: 20210419, end: 20210421
  4. ATROVENT [Concomitant]
     Active Substance: IPRATROPIUM BROMIDE
     Dates: start: 20210421, end: 20210421
  5. BRICANYL [Concomitant]
     Active Substance: TERBUTALINE SULFATE
     Dates: start: 20210421, end: 20210421
  6. LYRICA [Concomitant]
     Active Substance: PREGABALIN
     Indication: SCIATICA
     Dates: start: 20210119
  7. ACIDE FOLIQUE [Concomitant]
     Active Substance: FOLIC ACID
     Dates: start: 20210119
  8. MORPHINE [Concomitant]
     Active Substance: MORPHINE
     Indication: ABDOMINAL PAIN UPPER
     Route: 042
     Dates: start: 20210419
  9. COVID?19 VACCINE [Concomitant]
     Indication: COVID-19 PROPHYLAXIS
     Dates: start: 20210330, end: 20210330
  10. ACUPAN [Concomitant]
     Active Substance: NEFOPAM HYDROCHLORIDE
     Indication: ABDOMINAL PAIN UPPER
     Dosage: 4 AMPULE
     Route: 048
     Dates: start: 202104, end: 20210420
  11. LOVENOX [Concomitant]
     Active Substance: ENOXAPARIN SODIUM
     Dates: start: 20210426, end: 20210426
  12. DOLIPRANE [Concomitant]
     Active Substance: ACETAMINOPHEN
     Indication: SCIATICA
  13. MOVENTIG [Concomitant]
     Active Substance: NALOXEGOL OXALATE
     Indication: CONSTIPATION
     Dates: start: 20201215
  14. ALPRAZOLAM. [Concomitant]
     Active Substance: ALPRAZOLAM
     Indication: PROPHYLAXIS
     Dates: start: 20210419, end: 20210420
  15. VERSATIS [Concomitant]
     Active Substance: LIDOCAINE
     Indication: SCIATICA
     Dates: start: 20201215
  16. RED BLOOD CELLS [Concomitant]
     Active Substance: HUMAN RED BLOOD CELL
     Indication: ANAEMIA
     Dates: start: 20210326, end: 20210326
  17. MACROGOL [Concomitant]
     Active Substance: POLYETHYLENE GLYCOLS
     Indication: CONSTIPATION
     Dates: start: 20210420, end: 20210420
  18. KAYEXALATE [Concomitant]
     Active Substance: SODIUM POLYSTYRENE SULFONATE
     Indication: HYPERKALAEMIA
     Dates: start: 20210420, end: 20210422
  19. ATEZOLIZUMAB. [Suspect]
     Active Substance: ATEZOLIZUMAB
     Indication: CERVIX CARCINOMA
     Dosage: MOST RECENT DOSE (1200 MG) RECEIVED ON 29/MAR/2021 PRIOR TO AE/ SAE.
     Route: 041
     Dates: start: 20210209
  20. COVID?19 VACCINE [Concomitant]
     Dates: start: 20210422, end: 20210422
  21. SPASFON [Concomitant]
     Indication: ABDOMINAL PAIN UPPER
     Route: 048
     Dates: start: 20210419, end: 20210419
  22. PRIMPERAN [Concomitant]
     Active Substance: METOCLOPRAMIDE HYDROCHLORIDE
     Indication: NAUSEA
     Dates: start: 20210419, end: 20210421
  23. CHLORURE DE SODIUM [Concomitant]
     Active Substance: SODIUM CHLORIDE
     Dates: start: 20210419
  24. TIRAGOLUMAB. [Suspect]
     Active Substance: TIRAGOLUMAB
     Indication: CERVIX CARCINOMA
     Dosage: MOST RECENT DOSE (600 MG) RECEIVED ON 29/MAR/2021 PRIOR TO AE/ SAE.
     Route: 042
     Dates: start: 20210209
  25. SOPHIDONE [Concomitant]
     Active Substance: HYDROMORPHONE HYDROCHLORIDE
     Indication: SCIATICA
     Dates: start: 20210330, end: 20210418

REACTIONS (1)
  - Interstitial lung disease [Not Recovered/Not Resolved]

NARRATIVE: CASE EVENT DATE: 20210421
